FAERS Safety Report 7441424-8 (Version None)
Quarter: 2011Q2

REPORT INFORMATION
  Report Type: 
  Country: None (occurrence: None)
  Receive Date: 20110428
  Receipt Date: 20110418
  Transmission Date: 20111010
  Serious: Yes (Other)
  Sender: FDA-Public Use
  Company Number: US-JNJFOC-20110207615

PATIENT
  Sex: Male

DRUGS (3)
  1. RISPERDAL [Suspect]
     Indication: DEPRESSION
     Route: 065
  2. RISPERDAL [Suspect]
     Indication: ANXIETY
     Route: 065
  3. RISPERDAL [Suspect]
     Indication: OBSESSIVE-COMPULSIVE DISORDER
     Route: 065

REACTIONS (5)
  - BREAST MASS [None]
  - BREAST DISCHARGE [None]
  - BREAST DISORDER [None]
  - GYNAECOMASTIA [None]
  - BREAST NEOPLASM [None]
